FAERS Safety Report 6195327-X (Version None)
Quarter: 2009Q2

REPORT INFORMATION
  Report Type: 
  Country: None (occurrence: None)
  Receive Date: 20090519
  Receipt Date: 20090514
  Transmission Date: 20091009
  Serious: Yes (Other)
  Sender: FDA-Public Use
  Company Number: GB-PFIZER INC-2009212895

PATIENT

DRUGS (2)
  1. LIPITOR [Suspect]
     Indication: CARDIAC DISORDER
     Dosage: UNK
  2. LEVOTHYROXINE SODIUM [Concomitant]

REACTIONS (5)
  - AORTIC VALVE REPLACEMENT [None]
  - CEREBROVASCULAR ACCIDENT [None]
  - CORONARY ARTERY BYPASS [None]
  - PAIN IN EXTREMITY [None]
  - VERTEBRAL INJURY [None]
